FAERS Safety Report 23028790 (Version 2)
Quarter: 2024Q1

REPORT INFORMATION
  Report Type: Report from Study
  Country: TH (occurrence: TH)
  Receive Date: 20231004
  Receipt Date: 20240207
  Transmission Date: 20240410
  Serious: Yes (Hospitalization)
  Sender: FDA-Public Use
  Company Number: TH-002147023-NVSC2023TH207942

PATIENT
  Age: 63 Year
  Sex: Female

DRUGS (4)
  1. KISQALI [Suspect]
     Active Substance: RIBOCICLIB
     Indication: Breast cancer metastatic
     Dosage: 3 DOSAGE FORM, QD
     Route: 048
     Dates: start: 202305
  2. KISQALI [Suspect]
     Active Substance: RIBOCICLIB
     Dosage: 2 DOSAGE FORM, QD
     Route: 048
  3. KISQALI [Suspect]
     Active Substance: RIBOCICLIB
     Dosage: 1 DOSAGE FORM, QD
     Route: 048
  4. KISQALI [Suspect]
     Active Substance: RIBOCICLIB
     Dosage: 200 MG,DAILY, EVERY OTHER DAY
     Route: 048
     Dates: start: 202312

REACTIONS (10)
  - Blood sodium decreased [Unknown]
  - Condition aggravated [Unknown]
  - Somnolence [Unknown]
  - Blood test abnormal [Unknown]
  - Adverse drug reaction [Unknown]
  - Vomiting [Unknown]
  - Blood creatinine increased [Unknown]
  - White blood cell count decreased [Unknown]
  - Haematocrit decreased [Unknown]
  - Inappropriate schedule of product administration [Unknown]

NARRATIVE: CASE EVENT DATE: 20231201
